FAERS Safety Report 14907277 (Version 1)
Quarter: 2018Q2

REPORT INFORMATION
  Report Type: Spontaneous
  Country: FR (occurrence: FR)
  Receive Date: 20180517
  Receipt Date: 20180517
  Transmission Date: 20180711
  Serious: Yes (Other)
  Sender: FDA-Public Use
  Company Number: FR-VELOXIS PHARMACEUTICALS-2047976

PATIENT
  Age: 18 Year
  Sex: Male

DRUGS (2)
  1. NULOJIX [Suspect]
     Active Substance: BELATACEPT
     Route: 065
  2. ENVARSUS XR [Suspect]
     Active Substance: TACROLIMUS
     Indication: PRODUCT USED FOR UNKNOWN INDICATION
     Route: 065

REACTIONS (2)
  - Kidney transplant rejection [Unknown]
  - Renal failure [Unknown]
